FAERS Safety Report 6474664 (Version 3)
Quarter: 2018Q4

REPORT INFORMATION
  Report Type: Spontaneous
  Country: IT (occurrence: IT)
  Receive Date: 20071109
  Receipt Date: 20181207
  Transmission Date: 20190205
  Serious: Yes (Death, Hospitalization)
  Sender: FDA-Public Use
  Company Number: GXKR2007IT09326

PATIENT
  Age: 55 Year
  Sex: Male

DRUGS (6)
  1. ETOPOSIDE. [Suspect]
     Active Substance: ETOPOSIDE
     Dosage: 120 MG/M2, DAY 1-3 EVERY 28 DAYS, 2 CYCLES
     Route: 042
     Dates: start: 200409, end: 200412
  2. DEXAMETHASONE. [Suspect]
     Active Substance: DEXAMETHASONE
     Indication: PROPHYLAXIS
     Dosage: 8 MG, QD
     Route: 030
  3. CISPLATIN. [Suspect]
     Active Substance: CISPLATIN
     Dosage: 60 MG/M2, ON DAY 1 EVERY 28 DAYS, 2 CYCLES
     Route: 042
     Dates: start: 200409, end: 200412
  4. DEXAMETHASONE. [Suspect]
     Active Substance: DEXAMETHASONE
     Indication: OEDEMA
  5. ETOPOSIDE. [Suspect]
     Active Substance: ETOPOSIDE
     Indication: SMALL CELL LUNG CANCER
     Dosage: 4 CYCLES, 1 CYCLE EVERY 28 DAYS
     Route: 065
     Dates: start: 2004
  6. CISPLATIN. [Suspect]
     Active Substance: CISPLATIN
     Indication: SMALL CELL LUNG CANCER
     Dosage: 4 CYCLES, 1 CYCLE EVERY 28 DAYS
     Route: 065
     Dates: start: 2004

REACTIONS (12)
  - Coma [Fatal]
  - Lymphopenia [Fatal]
  - Confusional state [Fatal]
  - Tremor [Fatal]
  - Herpes simplex encephalitis [Fatal]
  - Cognitive disorder [Fatal]
  - Leukocytosis [Fatal]
  - Hypogammaglobulinaemia [Fatal]
  - Pyrexia [Fatal]
  - Meningoencephalitis herpetic [Fatal]
  - Nasopharyngitis [Fatal]
  - Asthenia [Fatal]
